FAERS Safety Report 7718916-7 (Version None)
Quarter: 2011Q3

REPORT INFORMATION
  Report Type: 
  Country: None (occurrence: None)
  Receive Date: 20110830
  Receipt Date: 20110823
  Transmission Date: 20111222
  Serious: Yes (Hospitalization)
  Sender: FDA-Public Use
  Company Number: JP-GILEAD-2010-0033028

PATIENT
  Sex: Male

DRUGS (5)
  1. NORVIR [Concomitant]
     Dates: start: 20060104, end: 20070427
  2. LEXIVA [Concomitant]
     Indication: HIV INFECTION
     Dates: start: 20081112
  3. NORVIR [Concomitant]
     Indication: HIV INFECTION
     Dates: start: 20081112
  4. TRUVADA [Suspect]
     Indication: HIV INFECTION
     Route: 048
     Dates: start: 20081112
  5. TRUVADA [Suspect]
     Route: 048
     Dates: start: 20060104, end: 20070427

REACTIONS (1)
  - MUSCLE HAEMORRHAGE [None]
